FAERS Safety Report 8585624-2 (Version None)
Quarter: 2012Q3

REPORT INFORMATION
  Report Type: 
  Country: None (occurrence: None)
  Receive Date: 20120810
  Receipt Date: 20120808
  Transmission Date: 20120928
  Serious: Yes (Hospitalization)
  Sender: FDA-Public Use
  Company Number: PHFR2012GB004394

PATIENT
  Age: 46 Year
  Sex: Male
  Weight: 66.6 kg

DRUGS (2)
  1. CLOZAPINE [Suspect]
     Dates: start: 19971215, end: 20050315
  2. CLOZAPINE [Suspect]
     Dosage: 450 MG, UNK
     Route: 048
     Dates: start: 20050316, end: 20120626

REACTIONS (5)
  - ABNORMAL BEHAVIOUR [None]
  - CATATONIA [None]
  - URINARY TRACT INFECTION [None]
  - INCONTINENCE [None]
  - MALAISE [None]
